FAERS Safety Report 11491874 (Version 2)
Quarter: 2015Q4

REPORT INFORMATION
  Report Type: Spontaneous
  Country: ES (occurrence: ES)
  Receive Date: 20150910
  Receipt Date: 20151027
  Transmission Date: 20160304
  Serious: Yes (Disabling, Other)
  Sender: FDA-Public Use
  Company Number: ES-TEVA-583534ISR

PATIENT
  Age: 38 Year
  Sex: Female

DRUGS (3)
  1. KETOCONAZOL RATIO 200 MG 30 COMPRIMIDOS [Suspect]
     Active Substance: KETOCONAZOLE
     Dosage: 600 MILLIGRAM DAILY;
     Route: 048
     Dates: start: 201309
  2. KETOCONAZOL RATIO 200 MG 30 COMPRIMIDOS [Suspect]
     Active Substance: KETOCONAZOLE
     Indication: CUSHING^S SYNDROME
     Dosage: 600 MILLIGRAM DAILY;
     Route: 048
     Dates: start: 20121030, end: 20130129
  3. KETOCONAZOL RATIO 200 MG 30 COMPRIMIDOS [Suspect]
     Active Substance: KETOCONAZOLE
     Dosage: 400 MILLIGRAM DAILY;
     Route: 048
     Dates: start: 20130529

REACTIONS (11)
  - Adrenal insufficiency [Not Recovered/Not Resolved]
  - Hirsutism [Not Recovered/Not Resolved]
  - Rash [Not Recovered/Not Resolved]
  - Blood cortisol increased [Not Recovered/Not Resolved]
  - Blood uric acid decreased [Not Recovered/Not Resolved]
  - Paronychia [Not Recovered/Not Resolved]
  - Tinnitus [Not Recovered/Not Resolved]
  - Vertigo [Not Recovered/Not Resolved]
  - Alopecia [Not Recovered/Not Resolved]
  - Neuropathy peripheral [Not Recovered/Not Resolved]
  - Menstrual disorder [Not Recovered/Not Resolved]

NARRATIVE: CASE EVENT DATE: 20131009
